FAERS Safety Report 6991043 (Version 2)
Quarter: 2013Q1

REPORT INFORMATION
  Report Type: Spontaneous
  Country: US (occurrence: US)
  Receive Date: 20090511
  Receipt Date: 20130308
  Transmission Date: 20140127
  Serious: Yes (Other)
  Sender: FDA-Public Use
  Company Number: US-ROCHE-630247

PATIENT
  Age: 42 Year
  Sex: Female

DRUGS (1)
  1. DACLIZUMAB [Suspect]
     Indication: MULTIPLE SCLEROSIS
     Dosage: TOTAL TWENTY ONE INFUSIONS WERE ADMINISTERED.
     Route: 042

REACTIONS (1)
  - Vasculitis cerebral [Not Recovered/Not Resolved]
